FAERS Safety Report 8593487-4 (Version None)
Quarter: 2012Q3

REPORT INFORMATION
  Report Type: 
  Country: None (occurrence: None)
  Receive Date: 20120814
  Receipt Date: 20120809
  Transmission Date: 20120928
  Serious: Yes (Death, Hospitalization, Other)
  Sender: FDA-Public Use
  Company Number: NL-PFIZER INC-2012194385

PATIENT
  Age: 71 Year
  Sex: Male

DRUGS (10)
  1. ASCAL [Concomitant]
     Dosage: UNK
  2. SPIRIVA [Concomitant]
     Indication: CHRONIC OBSTRUCTIVE PULMONARY DISEASE
     Dosage: 18 UG, UNK
  3. AVODART [Concomitant]
     Indication: PROSTATOMEGALY
     Dosage: 0.5 MG, UNK
  4. MONO-CEDOCARD [Concomitant]
     Dosage: 100 MG, UNK
  5. OMEPRAZOLE [Concomitant]
     Dosage: 20 MG, UNK
  6. SYMBICORT [Concomitant]
     Indication: CHRONIC OBSTRUCTIVE PULMONARY DISEASE
     Dosage: UNK
  7. TAMSULOSIN HYDROCHLORIDE [Concomitant]
     Indication: PROSTATOMEGALY
     Dosage: UNK
  8. ATORVASTATIN CALCIUM [Suspect]
     Dosage: UNK
  9. SELOKEEN [Concomitant]
     Dosage: 200 MG, UNK
  10. LASIX [Concomitant]
     Dosage: 40 MG, UNK

REACTIONS (6)
  - ANKLE FRACTURE [None]
  - HYPOTENSION [None]
  - FALL [None]
  - DEATH [None]
  - PATELLA FRACTURE [None]
  - CHEST DISCOMFORT [None]
